FAERS Safety Report 9367029 (Version 1)
Quarter: 2013Q2

REPORT INFORMATION
  Report Type: Spontaneous
  Country: CO (occurrence: CO)
  Receive Date: 20130625
  Receipt Date: 20130625
  Transmission Date: 20140414
  Serious: Yes (Other)
  Sender: FDA-Public Use
  Company Number: CO-BAXTER-2013BAX023249

PATIENT
  Age: 37 Year
  Sex: Female
  Weight: 51 kg

DRUGS (2)
  1. CLORURO DE SODIO [Suspect]
     Indication: MEDICATION DILUTION
     Route: 042
     Dates: start: 20130611, end: 20130611
  2. VANCOMYCIN [Suspect]
     Indication: INFECTION
     Route: 042
     Dates: start: 20130611, end: 20130611

REACTIONS (1)
  - Rash generalised [Recovered/Resolved]
